FAERS Safety Report 13893187 (Version 1)
Quarter: 2017Q3

REPORT INFORMATION
  Report Type: Spontaneous
  Country: US (occurrence: US)
  Receive Date: 20170822
  Receipt Date: 20170822
  Transmission Date: 20171127
  Serious: No
  Sender: FDA-Public Use
  Company Number: US-ROCHE-1237258

PATIENT
  Sex: Female

DRUGS (4)
  1. HERCEPTIN [Suspect]
     Active Substance: TRASTUZUMAB
     Indication: BREAST CANCER
     Route: 042
     Dates: start: 20130510
  2. ALOXI [Concomitant]
     Active Substance: PALONOSETRON HYDROCHLORIDE
     Indication: NAUSEA
     Route: 042
     Dates: start: 20130510
  3. TAXOTERE [Suspect]
     Active Substance: DOCETAXEL
     Indication: BREAST CANCER
     Route: 042
     Dates: start: 20130510
  4. EMEND [Concomitant]
     Active Substance: APREPITANT
     Indication: NAUSEA
     Route: 042
     Dates: start: 20130510

REACTIONS (3)
  - Epistaxis [Recovered/Resolved]
  - Eczema [Recovering/Resolving]
  - Skin exfoliation [Recovered/Resolved with Sequelae]

NARRATIVE: CASE EVENT DATE: 20130512
